FAERS Safety Report 8151475 (Version 4)
Quarter: 2012Q4

REPORT INFORMATION
  Report Type: 
  Country: US (occurrence: US)
  Receive Date: 20110922
  Receipt Date: 20120924
  Transmission Date: 20130627
  Serious: Yes (Other)
  Sender: FDA-Public Use
  Company Number: US-ASTRAZENECA-2011SE36974

PATIENT
  Age: 53 Year
  Sex: Female

DRUGS (4)
  1. SEROQUEL XR [Suspect]
     Indication: BIPOLAR DISORDER
     Route: 048
  2. SEROQUEL XR [Suspect]
     Indication: BIPOLAR DISORDER
     Route: 048
  3. SEROQUEL XR [Suspect]
     Indication: BIPOLAR DISORDER
     Route: 048
  4. ARIMIDEX [Suspect]
     Route: 048

REACTIONS (7)
  - Spinal column injury [Unknown]
  - Neoplasm malignant [Unknown]
  - Neoplasm recurrence [Unknown]
  - Breast cancer [Unknown]
  - Nasopharyngitis [Unknown]
  - Fibromyalgia [Unknown]
  - Intentional drug misuse [Unknown]
